FAERS Safety Report 9159289 (Version 1)
Quarter: 2013Q1

REPORT INFORMATION
  Report Type: Spontaneous
  Country: DE (occurrence: DE)
  Receive Date: 20130313
  Receipt Date: 20130313
  Transmission Date: 20140127
  Serious: Yes (Other)
  Sender: FDA-Public Use
  Company Number: DE-JNJFOC-20130217206

PATIENT
  Age: 61 Year
  Sex: Male

DRUGS (1)
  1. INFLIXIMAB, RECOMBINANT [Suspect]
     Indication: AUTOIMMUNE HEPATITIS
     Dosage: A TOTAL OF 6 INFUSIONS: 0-2-6 WEEKS AND EVERY 4 TO 8 WEEKS THEREAFTER
     Route: 042

REACTIONS (5)
  - Hypersensitivity [Unknown]
  - Off label use [Unknown]
  - Herpes ophthalmic [Unknown]
  - Urinary tract infection [Unknown]
  - Drug effect incomplete [Unknown]
